FAERS Safety Report 9270425 (Version 3)
Quarter: 2014Q2

REPORT INFORMATION
  Report Type: Spontaneous
  Country: US (occurrence: US)
  Receive Date: 20130503
  Receipt Date: 20140521
  Transmission Date: 20141212
  Serious: No
  Sender: FDA-Public Use
  Company Number: US-009507513-1305USA000393

PATIENT
  Sex: Male
  Weight: 65.76 kg

DRUGS (1)
  1. PROPECIA [Suspect]
     Indication: ALOPECIA
     Dosage: 1 MG, QD
     Route: 048
     Dates: start: 19981114, end: 19990527

REACTIONS (16)
  - Anxiety [Not Recovered/Not Resolved]
  - Limb injury [Unknown]
  - Joint injury [Unknown]
  - Joint injury [Unknown]
  - Gastrooesophageal reflux disease [Unknown]
  - Back pain [Not Recovered/Not Resolved]
  - Road traffic accident [Unknown]
  - Tonsillectomy [Unknown]
  - Hernia repair [Unknown]
  - Hypertension [Unknown]
  - Irritable bowel syndrome [Unknown]
  - Dysthymic disorder [Unknown]
  - Cognitive disorder [Unknown]
  - Sexual dysfunction [Not Recovered/Not Resolved]
  - Depression [Not Recovered/Not Resolved]
  - Erectile dysfunction [Not Recovered/Not Resolved]
